FAERS Safety Report 5338422-7 (Version None)
Quarter: 2007Q2

REPORT INFORMATION
  Report Type: 
  Country: None (occurrence: None)
  Receive Date: 20070405
  Receipt Date: 20061107
  Transmission Date: 20071010
  Serious: No
  Sender: FDA-Public Use
  Company Number: US200611001570

PATIENT
  Sex: Female

DRUGS (3)
  1. CYMBALTA [Suspect]
     Indication: DEPRESSION
     Dosage: 30 MG, EACH EVENING, ORAL
     Route: 048
     Dates: start: 20061102
  2. NEXIUM [Concomitant]
  3. SYNTHROID [Concomitant]

REACTIONS (2)
  - DYSPEPSIA [None]
  - NAUSEA [None]
